FAERS Safety Report 5706908-9 (Version None)
Quarter: 2008Q2

REPORT INFORMATION
  Report Type: 
  Country: None (occurrence: None)
  Receive Date: 20080416
  Receipt Date: 20080407
  Transmission Date: 20081010
  Serious: Yes (Hospitalization, Other)
  Sender: FDA-Public Use
  Company Number: US-ELI_LILLY_AND_COMPANY-US200804002324

PATIENT
  Sex: Male

DRUGS (15)
  1. BYETTA [Suspect]
     Dosage: 5 UG, 2/D
     Route: 058
     Dates: start: 20060101, end: 20060101
  2. BYETTA [Suspect]
     Dosage: 10 UG, DAILY (1/D)
     Route: 058
     Dates: start: 20060101
  3. BYETTA [Suspect]
     Dosage: 5 UG, 2/D
     Route: 058
     Dates: end: 20080201
  4. BYETTA [Suspect]
     Dosage: 10 UG, 2/D
     Route: 058
     Dates: start: 20080201
  5. ALPRAZOLAM [Concomitant]
     Indication: BLOOD PRESSURE
     Dosage: 5 MG, 3/D
  6. PRAVACHOL [Concomitant]
     Indication: BLOOD CHOLESTEROL
     Dosage: 40 MG, DAILY (1/D)
  7. COREG [Concomitant]
     Indication: CARDIAC DISORDER
     Dosage: 25 MG, DAILY (1/D)
  8. TRICOR [Concomitant]
     Indication: BLOOD CHOLESTEROL
     Dosage: 145 MG, DAILY (1/D)
  9. ALLOPURINOL [Concomitant]
     Indication: BLOOD PRESSURE
     Dosage: 100 MG, DAILY (1/D)
  10. FLOMAX [Concomitant]
     Dosage: 0.4 MG, DAILY (1/D)
  11. ISOSORBIDE DINITRATE [Concomitant]
     Indication: CARDIAC DISORDER
     Dosage: 60 MG, DAILY (1/D)
  12. LISINOPRIL AND HYDROCHLOROTHIAZIDE [Concomitant]
     Indication: BLOOD PRESSURE
     Dosage: UNK, EACH MORNING
  13. LISINOPRIL AND HYDROCHLOROTHIAZIDE [Concomitant]
     Dosage: 20 MG, EACH EVENING
     Dates: start: 20080301
  14. NEXIUM [Concomitant]
     Dosage: 40 MG, DAILY (1/D)
  15. PLAVIX [Concomitant]
     Indication: CORONARY ARTERY OCCLUSION
     Dosage: 75 MG, DAILY (1/D)

REACTIONS (10)
  - BLOOD GLUCOSE DECREASED [None]
  - BLOOD GLUCOSE INCREASED [None]
  - BLOOD PRESSURE INCREASED [None]
  - EAR DISCOMFORT [None]
  - GASTROINTESTINAL DISORDER [None]
  - HEADACHE [None]
  - NAUSEA [None]
  - STAPHYLOCOCCAL INFECTION [None]
  - VISION BLURRED [None]
  - WEIGHT INCREASED [None]
